FAERS Safety Report 7792273-2 (Version None)
Quarter: 2011Q4

REPORT INFORMATION
  Report Type: 
  Country: None (occurrence: None)
  Receive Date: 20111003
  Receipt Date: 20110923
  Transmission Date: 20120403
  Serious: Yes (Hospitalization)
  Sender: FDA-Public Use
  Company Number: CO-ROCHE-804015

PATIENT
  Sex: Male

DRUGS (3)
  1. HERCEPTIN [Suspect]
     Indication: GASTRIC CANCER
     Route: 042
     Dates: start: 20110729
  2. AVASTIN [Concomitant]
     Dosage: LAST INFUSION WAS ON 03 AUG 2011
  3. XELODA [Suspect]
     Indication: GASTRIC CANCER
     Route: 048
     Dates: start: 20110730

REACTIONS (1)
  - DYSPHAGIA [None]
